FAERS Safety Report 21525709 (Version 2)
Quarter: 2022Q4

REPORT INFORMATION
  Report Type: Report from Study
  Country: US (occurrence: US)
  Receive Date: 20221031
  Receipt Date: 20221117
  Transmission Date: 20230113
  Serious: No
  Sender: FDA-Public Use
  Company Number: US-ABBVIE-4142634

PATIENT
  Sex: Female

DRUGS (5)
  1. HUMIRA [Suspect]
     Active Substance: ADALIMUMAB
     Indication: Rheumatoid arthritis
     Route: 058
  2. HUMIRA [Suspect]
     Active Substance: ADALIMUMAB
     Route: 058
  3. Pfizer BioNTech COVID-19 vaccin [Concomitant]
     Indication: COVID-19 immunisation
     Route: 030
  4. Pfizer BioNTech COVID-19 vaccin [Concomitant]
     Indication: COVID-19 immunisation
     Route: 030
  5. Pfizer BioNTech COVID-19 vaccin [Concomitant]
     Indication: COVID-19 immunisation
     Dosage: BOOSTER
     Route: 030

REACTIONS (5)
  - Injection site erythema [Unknown]
  - Fatigue [Unknown]
  - Injection site papule [Unknown]
  - Rash papular [Unknown]
  - Injection site warmth [Unknown]
